FAERS Safety Report 25529974 (Version 2)
Quarter: 2025Q3

REPORT INFORMATION
  Report Type: Report from Study
  Country: US (occurrence: US)
  Receive Date: 20250708
  Receipt Date: 20250723
  Transmission Date: 20251021
  Serious: No
  Sender: TAIHO ONCOLOGY INC
  Company Number: US-TAIHOP-2025-007007

PATIENT
  Age: 83 Year
  Sex: Female

DRUGS (8)
  1. LONSURF [Suspect]
     Active Substance: TIPIRACIL HYDROCHLORIDE\TRIFLURIDINE
     Indication: Colon cancer
     Dosage: CYCLE UNKNOWN
     Route: 048
  2. LONSURF [Suspect]
     Active Substance: TIPIRACIL HYDROCHLORIDE\TRIFLURIDINE
     Route: 048
  3. LONSURF [Suspect]
     Active Substance: TIPIRACIL HYDROCHLORIDE\TRIFLURIDINE
     Dosage: FORM STRENGTH: 15 MG AND 20 MG?MORNING AND EVENING, MONDAY FRIDAY, 2 WEEKS ON AND 1 WEEK OFF
     Route: 048
     Dates: start: 20250517
  4. ASCORBIC ACD [Concomitant]
     Indication: Product used for unknown indication
  5. AVASTIN [Concomitant]
     Active Substance: BEVACIZUMAB
     Indication: Product used for unknown indication
  6. MULTIVITAMIN DAILY [Concomitant]
     Indication: Product used for unknown indication
  7. UREA [Concomitant]
     Active Substance: UREA
     Indication: Product used for unknown indication
  8. VITAMIN B12 [Concomitant]
     Active Substance: CYANOCOBALAMIN
     Indication: Product used for unknown indication

REACTIONS (3)
  - Neutropenia [Recovering/Resolving]
  - Prescribed underdose [Unknown]
  - Inappropriate schedule of product administration [Unknown]
